FAERS Safety Report 21976572 (Version 7)
Quarter: 2023Q1

REPORT INFORMATION
  Report Type: Spontaneous
  Country: US (occurrence: US)
  Receive Date: 20230210
  Receipt Date: 20230329
  Transmission Date: 20230417
  Serious: No
  Sender: FDA-Public Use
  Company Number: US-PFIZER INC-PV202300023979

PATIENT
  Age: 13 Year
  Sex: Male

DRUGS (1)
  1. GENOTROPIN [Suspect]
     Active Substance: SOMATROPIN
     Dosage: 2.2 MG (BY INJECTION 6 DAYS A WEEK)

REACTIONS (3)
  - Device use issue [Unknown]
  - Device leakage [Unknown]
  - Wrong technique in device usage process [Unknown]
